FAERS Safety Report 6517743-6 (Version None)
Quarter: 2009Q4

REPORT INFORMATION
  Report Type: 
  Country: None (occurrence: None)
  Receive Date: 20091218
  Receipt Date: 20091215
  Transmission Date: 20100525
  Serious: Yes (Hospitalization)
  Sender: FDA-Public Use
  Company Number: SP02497

PATIENT
  Age: 69 Year
  Sex: Female
  Weight: 55.3388 kg

DRUGS (5)
  1. OSMOPREP [Suspect]
     Dosage: ORAL
     Route: 048
     Dates: start: 20070429
  2. AVALIDE [Concomitant]
  3. HUMULIN (INJECTION) [Concomitant]
  4. LYRICA [Concomitant]
  5. WELCHOL [Concomitant]

REACTIONS (19)
  - ABDOMINAL PAIN [None]
  - ANURIA [None]
  - ASTHENIA [None]
  - BACTERIAL TEST POSITIVE [None]
  - BLOOD CALCIUM INCREASED [None]
  - BLOOD GLUCOSE DECREASED [None]
  - BLOOD GLUCOSE INCREASED [None]
  - DIARRHOEA [None]
  - DYSARTHRIA [None]
  - HAEMATOCRIT INCREASED [None]
  - HAEMOGLOBIN DECREASED [None]
  - LIPASE INCREASED [None]
  - NEPHROCALCINOSIS [None]
  - PRODUCTIVE COUGH [None]
  - RENAL FAILURE ACUTE [None]
  - SPUTUM DISCOLOURED [None]
  - URINARY RETENTION [None]
  - VOMITING [None]
  - WHITE BLOOD CELLS URINE POSITIVE [None]
